FAERS Safety Report 7718704-1 (Version None)
Quarter: 2011Q3

REPORT INFORMATION
  Report Type: 
  Country: None (occurrence: None)
  Receive Date: 20110830
  Receipt Date: 20110818
  Transmission Date: 20111222
  Serious: No
  Sender: FDA-Public Use
  Company Number: CA-ELI_LILLY_AND_COMPANY-CA201108005757

PATIENT
  Sex: Male

DRUGS (7)
  1. TEMAZEPAM [Concomitant]
  2. ZYPREXA [Suspect]
     Dosage: 5 MG, UNK
  3. ATIVAN [Concomitant]
  4. ZYPREXA [Suspect]
     Indication: SCHIZOPHRENIA
     Dosage: 2.5 MG, UNK
  5. FLUANXOL [Concomitant]
  6. RISPERDAL [Concomitant]
  7. CHLORPROMAZINE HCL [Concomitant]

REACTIONS (5)
  - CATARACT NUCLEAR [None]
  - HYPERTENSION [None]
  - HAEMORRHOIDS [None]
  - DIABETES MELLITUS [None]
  - RECTAL HAEMORRHAGE [None]
